FAERS Safety Report 6566356-9 (Version None)
Quarter: 2010Q1

REPORT INFORMATION
  Report Type: 
  Country: None (occurrence: None)
  Receive Date: 20100202
  Receipt Date: 20100122
  Transmission Date: 20100710
  Serious: Yes (Hospitalization)
  Sender: FDA-Public Use
  Company Number: US-ELI_LILLY_AND_COMPANY-US201001005634

PATIENT
  Sex: Female

DRUGS (14)
  1. FORTEO [Suspect]
     Indication: OSTEOPOROSIS
     Dosage: 20 UG, DAILY (1/D)
     Route: 065
     Dates: start: 20090101, end: 20100115
  2. LEVOTHYROXINE SODIUM [Concomitant]
     Dosage: 100 UG, DAILY (1/D)
     Route: 065
  3. FUROSEMIDE [Concomitant]
     Dosage: 40 MG, 2/D
     Route: 065
  4. ASPIRIN [Concomitant]
     Dosage: 81 MG, UNKNOWN
     Route: 065
  5. PHENOBARBITAL [Concomitant]
     Dosage: 400 MG, EACH EVENING
     Route: 065
  6. MECLIZINE [Concomitant]
     Indication: DIZZINESS
     Dosage: 25 MG, DAILY (1/D)
     Route: 065
  7. KLOR-CON [Concomitant]
     Dosage: 10 MG, DAILY (1/D)
     Route: 065
  8. OMEPRAZOLE [Concomitant]
     Dosage: 20 MG, 2/D
     Route: 065
  9. SINGULAIR [Concomitant]
     Dosage: 10 MG, DAILY (1/D)
     Route: 065
  10. METOPROLOL TARTRATE [Concomitant]
     Dosage: 25 MG, 2/D
     Route: 065
  11. HYDROCODONE BITARTRATE AND ACETAMINOPHEN [Concomitant]
     Dosage: UNK, 4/D
     Route: 065
  12. COMBIVENT [Concomitant]
     Indication: WHEEZING
     Dosage: UNK, 4/D
     Route: 065
  13. SYMBICORT [Concomitant]
     Dosage: UNK, 2/D
     Route: 065
  14. OXYGEN [Concomitant]
     Dosage: 2 LITER, EACH EVENING
     Route: 065

REACTIONS (4)
  - ABASIA [None]
  - ARTHROPATHY [None]
  - DEVICE FAILURE [None]
  - MOBILITY DECREASED [None]
